FAERS Safety Report 8321109-6 (Version None)
Quarter: 2012Q2

REPORT INFORMATION
  Report Type: 
  Country: None (occurrence: None)
  Receive Date: 20120430
  Receipt Date: 20120420
  Transmission Date: 20120825
  Serious: Yes (Hospitalization)
  Sender: FDA-Public Use
  Company Number: DE-JNJFOC-20120409027

PATIENT
  Age: 3 Decade
  Sex: Male

DRUGS (2)
  1. PALIPERIDONE [Suspect]
     Indication: SCHIZOPHRENIA, PARANOID TYPE
     Dosage: 200MG- 200MG - 300MG
     Route: 030
  2. CLOZAPINE [Concomitant]
     Route: 065

REACTIONS (1)
  - ILEUS [None]
